FAERS Safety Report 7251076-8 (Version None)
Quarter: 2011Q1

REPORT INFORMATION
  Report Type: 
  Country: None (occurrence: None)
  Receive Date: 20110128
  Receipt Date: 20110125
  Transmission Date: 20110831
  Serious: Yes (Life-Threatening, Hospitalization)
  Sender: FDA-Public Use
  Company Number: GB-MERCK-1101GBR00107

PATIENT
  Age: 56 Year
  Sex: Female

DRUGS (1)
  1. MAXALT [Suspect]
     Indication: MIGRAINE
     Route: 048
     Dates: start: 20100903, end: 20100921

REACTIONS (4)
  - CHEST PAIN [None]
  - STRESS CARDIOMYOPATHY [None]
  - ARTERIOSPASM CORONARY [None]
  - MYOCARDITIS [None]
